FAERS Safety Report 14847366 (Version 14)
Quarter: 2020Q4

REPORT INFORMATION
  Report Type: Spontaneous
  Country: DE (occurrence: DE)
  Receive Date: 20180504
  Receipt Date: 20201026
  Transmission Date: 20210113
  Serious: Yes (Hospitalization)
  Sender: FDA-Public Use
  Company Number: DE-AUROBINDO-AUR-APL-2018-023479

PATIENT
  Age: 62 Year
  Sex: Female
  Weight: 45 kg

DRUGS (49)
  1. EZETIMIBE TABLETS [Interacting]
     Active Substance: EZETIMIBE
     Indication: PRODUCT USED FOR UNKNOWN INDICATION
     Dosage: 10 MILLIGRAM, ONCE A DAY (1-0-0-0)
     Route: 048
  2. ALUMINIUM HYDROXIDE GEL;MAGNESIUM CARBONATE [Interacting]
     Active Substance: ALUMINUM HYDROXIDE\MAGNESIUM CARBONATE
     Indication: PRODUCT USED FOR UNKNOWN INDICATION
     Dosage: 2 DOSAGE FORM, ONCE A DAY
     Route: 048
  3. HYDROCHLOROTHIAZIDE. [Suspect]
     Active Substance: HYDROCHLOROTHIAZIDE
     Indication: PRODUCT USED FOR UNKNOWN INDICATION
     Dosage: 25 MILLIGRAM, ONCE A DAY,(1-0-0-0)
     Route: 048
  4. MAGNESIUM OXIDE. [Interacting]
     Active Substance: MAGNESIUM OXIDE
     Indication: PRODUCT USED FOR UNKNOWN INDICATION
     Dosage: 1 DOSAGE FORM, ONCE A DAY
     Route: 048
  5. DUROGESIC [Suspect]
     Active Substance: FENTANYL
     Indication: PRODUCT USED FOR UNKNOWN INDICATION
     Dosage: 50 MICROGRAM, ONCE A DAY,QD
     Route: 048
  6. LACTULOSE. [Interacting]
     Active Substance: LACTULOSE
     Indication: PRODUCT USED FOR UNKNOWN INDICATION
     Dosage: 1 DOSAGE FORM, ONCE A DAY, 1 DF, QD, 1 MEASURING CUP
     Route: 048
  7. MAGNESIUM VERLA [Interacting]
     Active Substance: MAGNESIUM
     Dosage: 2 DOSAGE FORM, ONCE A DAY
     Route: 048
  8. PANTOZOL [Interacting]
     Active Substance: PANTOPRAZOLE SODIUM
     Indication: PRODUCT USED FOR UNKNOWN INDICATION
     Dosage: 40 MG, QD (1-0-0-0)
     Route: 048
  9. PENTAZOCINE HYDROCHLORIDE [Suspect]
     Active Substance: PENTAZOCINE HYDROCHLORIDE
     Dosage: 1 UNK
     Route: 048
  10. VIGANTOLETTEN [Suspect]
     Active Substance: CHOLECALCIFEROL
     Indication: PRODUCT USED FOR UNKNOWN INDICATION
     Dosage: 100 INTERNATIONAL UNIT, ONCE A DAY
     Route: 048
  11. FUROSEMIDE. [Interacting]
     Active Substance: FUROSEMIDE
     Dosage: 160 MILLIGRAM, ONCE A DAY,QD
     Route: 048
  12. LEVOPAR [Suspect]
     Active Substance: BENSERAZIDE\LEVODOPA
     Dosage: 1 DOSAGE FORM, ONCE A DAY
     Route: 055
  13. MAGNESIUM CITRATE. [Interacting]
     Active Substance: MAGNESIUM CITRATE
     Indication: PRODUCT USED FOR UNKNOWN INDICATION
     Dosage: 2 UNK, QD
     Route: 048
  14. NOVALGIN (METAMIZOLE SODIUM) [Suspect]
     Active Substance: METAMIZOLE SODIUM
     Indication: PRODUCT USED FOR UNKNOWN INDICATION
     Dosage: 30 GTT DROPS, 3 TIMES A DAY
     Route: 048
  15. PENTAZOCINE HYDROCHLORIDE [Suspect]
     Active Substance: PENTAZOCINE HYDROCHLORIDE
     Indication: PRODUCT USED FOR UNKNOWN INDICATION
     Dosage: 30 GTT DROPS, TID
     Route: 048
  16. VIANI [Suspect]
     Active Substance: FLUTICASONE PROPIONATE\SALMETEROL XINAFOATE
     Dosage: 1 DOSAGE FORM, ONCE A DAY
     Route: 055
  17. FUROSEMIDE. [Interacting]
     Active Substance: FUROSEMIDE
     Indication: PRODUCT USED FOR UNKNOWN INDICATION
     Dosage: 40 MILLIGRAM, 4-0-0-0
     Route: 048
  18. MUCOSOLVAN [Interacting]
     Active Substance: AMBROXOL HYDROCHLORIDE
     Indication: PRODUCT USED FOR UNKNOWN INDICATION
     Dosage: 30 DROP, PRN ; AS NECESSARY
     Route: 048
  19. MAGNESIUM VERLA [Interacting]
     Active Substance: MAGNESIUM
     Indication: PRODUCT USED FOR UNKNOWN INDICATION
     Dosage: 1 DOSAGE FORM, ONCE A DAY 2 OT, QD (2-0-0-0)
     Route: 048
  20. MAGNESIUM CITRATE;PYRIDOXINE HYDROCHLORIDE [Interacting]
     Active Substance: MAGNESIUM CITRATE\PYRIDOXINE
     Indication: PRODUCT USED FOR UNKNOWN INDICATION
     Dosage: UNK, TWO TIMES A DAY
     Route: 048
  21. PARACETAMOL [Suspect]
     Active Substance: ACETAMINOPHEN
     Dosage: 90 DOSAGE FORM, ONCE A DAY
     Route: 048
  22. PARACETAMOL [Suspect]
     Active Substance: ACETAMINOPHEN
     Dosage: 1 DOSAGE FORM, ONCE A DAY
     Route: 048
  23. PARACETAMOL;PENTAZOCINE [Interacting]
     Active Substance: ACETAMINOPHEN\PENTAZOCINE HYDROCHLORIDE
     Indication: PRODUCT USED FOR UNKNOWN INDICATION
     Dosage: 90 DF, QD, UNIT DOSE: 30 DROPS
     Route: 048
  24. VIANI [Suspect]
     Active Substance: FLUTICASONE PROPIONATE\SALMETEROL XINAFOATE
     Indication: PRODUCT USED FOR UNKNOWN INDICATION
     Dosage: 2 DOSAGE FORM, ONCE A DAY (50|500 ?G, 1-0-1-0), 2 DF, QD, 50|500 ?G
     Route: 055
  25. SIMVASTATIN. [Suspect]
     Active Substance: SIMVASTATIN
     Indication: PRODUCT USED FOR UNKNOWN INDICATION
     Dosage: 40 MILLIGRAM, ONCE A DAY  (0-0-1-0)
     Route: 048
  26. BENSERAZIDE HYDROCHLORIDE [Suspect]
     Active Substance: BENSERAZIDE HYDROCHLORIDE
     Indication: PRODUCT USED FOR UNKNOWN INDICATION
     Dosage: 100 MILLIGRAM (1-0-2.5-0)
     Route: 048
  27. LEVOPAR [Suspect]
     Active Substance: BENSERAZIDE\LEVODOPA
     Dosage: 100 MILLIGRAM, TWO TIMES A DAY
     Route: 048
  28. MAGNESIUM CITRATE. [Interacting]
     Active Substance: MAGNESIUM CITRATE
     Dosage: 1 DF, QD
     Route: 048
  29. MAGNESIUM [Suspect]
     Active Substance: MAGNESIUM
     Indication: PRODUCT USED FOR UNKNOWN INDICATION
     Dosage: 2 DOSAGE FORM, ONCE A DAY (2-0-0-0)
     Route: 048
  30. PARACETAMOL;PENTAZOCINE [Interacting]
     Active Substance: ACETAMINOPHEN\PENTAZOCINE HYDROCHLORIDE
     Dosage: 30 GTT, 3 TIMES A DAY
     Route: 048
  31. RAPAMUNE [Suspect]
     Active Substance: SIROLIMUS
     Indication: PRODUCT USED FOR UNKNOWN INDICATION
     Dosage: 1 MILLIGRAM, ONCE A DAY (1 MG, QD (1-0-0-0)
     Route: 048
  32. SPIRONOLACTONE. [Suspect]
     Active Substance: SPIRONOLACTONE
     Dosage: 200 MILLIGRAM, TWO TIMES A DAY
     Route: 048
  33. SPIRIVA [Suspect]
     Active Substance: TIOTROPIUM BROMIDE MONOHYDRATE
     Indication: PRODUCT USED FOR UNKNOWN INDICATION
     Dosage: 18 MICROGRAM, TWO TIMES A DAY, 12 HOUR (1-0-1-0)
     Route: 055
  34. KALINOR (POTASSIUM CHLORIDE) [Interacting]
     Active Substance: POTASSIUM CHLORIDE
     Indication: PRODUCT USED FOR UNKNOWN INDICATION
     Dosage: 100 MILLIGRAM, ONCE A DAY,(1-0-0-0)
     Route: 048
  35. METAMIZOLE SODIUM [Suspect]
     Active Substance: METAMIZOLE SODIUM
     Indication: PRODUCT USED FOR UNKNOWN INDICATION
     Dosage: 30 GTT, 3 TIMES A DAY (TID)
     Route: 048
  36. PARACETAMOL [Suspect]
     Active Substance: ACETAMINOPHEN
     Indication: PRODUCT USED FOR UNKNOWN INDICATION
     Dosage: 1 DOSAGE FORM, ONCE A DAY
     Route: 048
  37. PANTOPRAZOLE [Suspect]
     Active Substance: PANTOPRAZOLE
     Indication: PRODUCT USED FOR UNKNOWN INDICATION
     Dosage: 40 MILLIGRAM, ONCE A DAY, (1-0-0-0)
     Route: 048
  38. IMUREK [Interacting]
     Active Substance: AZATHIOPRINE
     Indication: PRODUCT USED FOR UNKNOWN INDICATION
     Dosage: 50 MILLIGRAM, ONCE A DAY,QD
     Route: 048
  39. PARACETAMOL [Suspect]
     Active Substance: ACETAMINOPHEN
     Dosage: 30 GTT DROPS, 3 TIMES A DAY
     Route: 048
  40. PYRIDOXINE HYDROCHLORIDE. [Interacting]
     Active Substance: PYRIDOXINE HYDROCHLORIDE
     Indication: PRODUCT USED FOR UNKNOWN INDICATION
     Dosage: 1 DOSAGE FORM, ONCE A DAY
     Route: 048
  41. SPIRONOLACTONE. [Suspect]
     Active Substance: SPIRONOLACTONE
     Indication: PRODUCT USED FOR UNKNOWN INDICATION
     Dosage: 100 MILLIGRAM, ONCE A DAY
     Route: 048
  42. LEVOPAR [Suspect]
     Active Substance: BENSERAZIDE\LEVODOPA
     Indication: PRODUCT USED FOR UNKNOWN INDICATION
     Dosage: 100 MILLIGRAM, ONCE A DAY (1-0-2.5-0)
     Route: 048
  43. MAGNESIUM CITRATE;PYRIDOXINE HYDROCHLORIDE [Interacting]
     Active Substance: MAGNESIUM CITRATE\PYRIDOXINE
     Dosage: UNK, ONCE A DAY 2 UNK, QD
     Route: 048
  44. MAGNESIUM CITRATE;PYRIDOXINE HYDROCHLORIDE [Interacting]
     Active Substance: MAGNESIUM CITRATE\PYRIDOXINE
     Dosage: 1 DOSAGE FORM, ONCE A DAY
     Route: 048
  45. MANGANESE SULFATE. [Interacting]
     Active Substance: MANGANESE SULFATE
     Indication: PRODUCT USED FOR UNKNOWN INDICATION
     Dosage: 1 DOSAGE FORM, ONCE A DAY
     Route: 048
  46. PARACETAMOL;PENTAZOCINE [Interacting]
     Active Substance: ACETAMINOPHEN\PENTAZOCINE HYDROCHLORIDE
     Dosage: 1 DOSAGE FORM, ONCE A DAY
     Route: 048
  47. PENTAZOCINE HYDROCHLORIDE [Suspect]
     Active Substance: PENTAZOCINE HYDROCHLORIDE
     Dosage: 90 DF, QD
     Route: 048
  48. SPIRONOLACTONE. [Suspect]
     Active Substance: SPIRONOLACTONE
     Dosage: 2 DOSAGE FORM, ONCE A DAY
     Route: 048
  49. URSOFALK [Suspect]
     Active Substance: URSODIOL
     Indication: PRODUCT USED FOR UNKNOWN INDICATION
     Dosage: 500 MILLIGRAM, TWO TIMES A DAY
     Route: 048

REACTIONS (3)
  - Product prescribing error [Unknown]
  - General physical health deterioration [Unknown]
  - Drug interaction [Unknown]

NARRATIVE: CASE EVENT DATE: 20150916
